FAERS Safety Report 8758889 (Version 1)
Quarter: 2012Q4

REPORT INFORMATION
  Report Type: 
  Country: IT (occurrence: IT)
  Receive Date: 20120829
  Receipt Date: 20120829
  Transmission Date: 20130627
  Serious: Yes (Other)
  Sender: FDA-Public Use
  Company Number: IT-MYLANLABS-2012S1016869

PATIENT
  Age: 32 Year
  Sex: Male

DRUGS (2)
  1. AMIODARONE [Suspect]
     Indication: ARRHYTHMIA PROPHYLAXIS
     Dosage: 300mg over 6 hours
     Route: 041
  2. AMIODARONE [Suspect]
     Indication: ARRHYTHMIA PROPHYLAXIS
     Dosage: 540mg over the remaining 18 hours
     Route: 041

REACTIONS (1)
  - Electrocardiogram abnormal [Recovered/Resolved]
